FAERS Safety Report 22196252 (Version 1)
Quarter: 2023Q2

REPORT INFORMATION
  Report Type: Spontaneous
  Country: US (occurrence: US)
  Receive Date: 20230411
  Receipt Date: 20230411
  Transmission Date: 20230721
  Serious: Yes (Life-Threatening, Hospitalization, Other)
  Sender: FDA-Public Use
  Company Number: US-ALKEM LABORATORIES LIMITED-US-ALKEM-2023-03340

PATIENT
  Age: 84 Year
  Sex: Male

DRUGS (2)
  1. DABIGATRAN ETEXILATE MESYLATE [Suspect]
     Active Substance: DABIGATRAN ETEXILATE MESYLATE
     Indication: Atrial fibrillation
     Dosage: 150 MILLIGRAM, BID
     Route: 065
  2. DABIGATRAN ETEXILATE MESYLATE [Suspect]
     Active Substance: DABIGATRAN ETEXILATE MESYLATE
     Indication: Ischaemic stroke

REACTIONS (7)
  - Pulmonary oedema [Recovering/Resolving]
  - Gastrointestinal haemorrhage [Unknown]
  - Procedural haemorrhage [Unknown]
  - Rectal haemorrhage [Unknown]
  - Abdominal distension [Unknown]
  - Drug level increased [Unknown]
  - Coagulopathy [Unknown]
